FAERS Safety Report 24699352 (Version 1)
Quarter: 2024Q4

REPORT INFORMATION
  Report Type: Spontaneous
  Country: AU (occurrence: AU)
  Receive Date: 20241205
  Receipt Date: 20241205
  Transmission Date: 20250115
  Serious: Yes (Life-Threatening, Hospitalization, Congenital Anomaly, Other)
  Sender: GRANULES PHARMACEUTICALS INC
  Company Number: AU-GRANULES-AU-2024GRALIT00611

PATIENT
  Sex: Female

DRUGS (1)
  1. IBUPROFEN [Suspect]
     Active Substance: IBUPROFEN
     Indication: Foetal exposure during pregnancy
     Route: 064

REACTIONS (7)
  - Patent ductus arteriosus [Unknown]
  - Right-to-left cardiac shunt [Unknown]
  - Neonatal pulmonary hypertension [Recovered/Resolved]
  - Cyanosis neonatal [Recovered/Resolved]
  - Tricuspid valve incompetence [Recovered/Resolved]
  - Papillary muscle rupture [Unknown]
  - Foetal exposure during pregnancy [Unknown]
